FAERS Safety Report 12768922 (Version 1)
Quarter: 2016Q3

REPORT INFORMATION
  Report Type: Spontaneous
  Country: US (occurrence: US)
  Receive Date: 20160921
  Receipt Date: 20160921
  Transmission Date: 20161109
  Serious: No
  Sender: FDA-Public Use
  Company Number: US-JAZZ-2016-US-010400

PATIENT
  Age: 42 Year
  Sex: Female

DRUGS (38)
  1. TRAMADOL. [Concomitant]
     Active Substance: TRAMADOL
  2. TRAMADOL HCL [Concomitant]
     Active Substance: TRAMADOL HYDROCHLORIDE
  3. XYREM [Suspect]
     Active Substance: SODIUM OXYBATE
     Dosage: DOSE ADJUSTMENTS
     Route: 048
     Dates: start: 201302, end: 201501
  4. NITROFURANTOIN. [Concomitant]
     Active Substance: NITROFURANTOIN
  5. CETIRIZINE HCL [Concomitant]
     Active Substance: CETIRIZINE HYDROCHLORIDE
  6. ZYRTEC [Concomitant]
     Active Substance: CETIRIZINE HYDROCHLORIDE
  7. ONDANSETRON HCL [Concomitant]
     Active Substance: ONDANSETRON HYDROCHLORIDE
  8. ALLEGRA ALLERGY [Concomitant]
     Active Substance: FEXOFENADINE HYDROCHLORIDE
  9. LACTAID FAST ACT [Concomitant]
     Active Substance: LACTASE
  10. XYREM [Suspect]
     Active Substance: SODIUM OXYBATE
     Dosage: 4.5 G, SECOND DOSE
     Route: 048
     Dates: start: 201501
  11. SEROQUEL [Suspect]
     Active Substance: QUETIAPINE FUMARATE
     Indication: PRODUCT USED FOR UNKNOWN INDICATION
     Dosage: UNK
  12. ALPRAZOLAM. [Concomitant]
     Active Substance: ALPRAZOLAM
  13. IBUPROFEN. [Concomitant]
     Active Substance: IBUPROFEN
  14. OXYBUTYNIN CHLORIDE. [Concomitant]
     Active Substance: OXYBUTYNIN CHLORIDE
  15. DICLOFENAC POTASSIUM. [Concomitant]
     Active Substance: DICLOFENAC POTASSIUM
  16. CIPRO [Concomitant]
     Active Substance: CIPROFLOXACIN HYDROCHLORIDE
  17. PYRIDIUM [Concomitant]
     Active Substance: PHENAZOPYRIDINE
  18. AMITRIPTYLINE HCL [Concomitant]
     Active Substance: AMITRIPTYLINE
  19. VITAMIN D [Concomitant]
     Active Substance: CHOLECALCIFEROL
  20. ABILIFY [Concomitant]
     Active Substance: ARIPIPRAZOLE
  21. QUETIAPINE FUMARATE. [Concomitant]
     Active Substance: QUETIAPINE FUMARATE
  22. LAMICTAL [Concomitant]
     Active Substance: LAMOTRIGINE
  23. BACTRIM [Concomitant]
     Active Substance: SULFAMETHOXAZOLE\TRIMETHOPRIM
  24. METHYLPHENIDATE. [Concomitant]
     Active Substance: METHYLPHENIDATE
  25. INVEGA [Concomitant]
     Active Substance: PALIPERIDONE
  26. FOLIC ACID. [Concomitant]
     Active Substance: FOLIC ACID
  27. MIGRANAL [Concomitant]
     Active Substance: DIHYDROERGOTAMINE MESYLATE
  28. PRAMIPEXOLE. [Concomitant]
     Active Substance: PRAMIPEXOLE
  29. BUPROPION HCL [Concomitant]
     Active Substance: BUPROPION HYDROCHLORIDE
  30. METHOCARBAMOL. [Concomitant]
     Active Substance: METHOCARBAMOL
  31. PHENAZOPYRIDINE. [Concomitant]
     Active Substance: PHENAZOPYRIDINE
  32. XYREM [Suspect]
     Active Substance: SODIUM OXYBATE
     Indication: NARCOLEPSY
     Dosage: 1.5 G, BID
     Route: 048
     Dates: start: 201302, end: 201302
  33. XYREM [Suspect]
     Active Substance: SODIUM OXYBATE
     Dosage: 3.75 G, FIRST DOSE
     Route: 048
     Dates: start: 201501
  34. MODAFINIL. [Concomitant]
     Active Substance: MODAFINIL
  35. KETOROLAC TROMETHALINE [Concomitant]
  36. ROZEREM [Concomitant]
     Active Substance: RAMELTEON
  37. MAGNESIUM [Concomitant]
     Active Substance: MAGNESIUM
  38. PROVIGIL [Concomitant]
     Active Substance: MODAFINIL

REACTIONS (3)
  - Limb injury [Unknown]
  - Somnolence [Unknown]
  - Urinary tract infection [Unknown]

NARRATIVE: CASE EVENT DATE: 201601
